APPROVED DRUG PRODUCT: ULO
Active Ingredient: CHLOPHEDIANOL HYDROCHLORIDE
Strength: 25MG/5ML
Dosage Form/Route: SYRUP;ORAL
Application: N012126 | Product #001
Applicant: 3M PHARMACEUTICALS INC
Approved: Approved Prior to Jan 1, 1982 | RLD: No | RS: No | Type: DISCN